FAERS Safety Report 14216652 (Version 13)
Quarter: 2018Q2

REPORT INFORMATION
  Report Type: Spontaneous
  Country: US (occurrence: US)
  Receive Date: 20171122
  Receipt Date: 20180625
  Transmission Date: 20180711
  Serious: Yes (Hospitalization, Other)
  Sender: FDA-Public Use
  Company Number: US-ACTELION-A-US2017-162973

PATIENT
  Age: 66 Year
  Sex: Female

DRUGS (13)
  1. REMODULIN [Suspect]
     Active Substance: TREPROSTINIL
     Indication: PULMONARY HYPERTENSION
     Dosage: 19 NG/KG, PER MIN
     Route: 042
     Dates: start: 20170330
  2. OXYGEN. [Concomitant]
     Active Substance: OXYGEN
  3. COLACE [Concomitant]
     Active Substance: DOCUSATE SODIUM
     Indication: CONSTIPATION
     Dosage: 200 MG, PRN
     Route: 048
  4. PRAVASTATIN. [Concomitant]
     Active Substance: PRAVASTATIN
     Indication: HYPERLIPIDAEMIA
     Dosage: 20 MG, QD
     Route: 048
  5. FERROUS SULFATE. [Concomitant]
     Active Substance: FERROUS SULFATE
     Indication: ANAEMIA
     Dosage: 325 MG, QD
     Route: 048
  6. MULTIVITAMIN [Concomitant]
     Active Substance: VITAMINS
     Dosage: 1 TAB, QD
     Route: 048
  7. ALPRAZOLAM. [Concomitant]
     Active Substance: ALPRAZOLAM
     Indication: ANXIETY
     Dosage: 0.13 MG, PRN
  8. POLYCARBOPHIL [Concomitant]
     Active Substance: POLYCARBOPHIL
     Indication: CONSTIPATION
     Dosage: 2 TABS, BID
     Route: 048
  9. UBIQUINONE [Concomitant]
     Active Substance: UBIDECARENONE
     Dosage: 800 MG, QD
     Route: 048
  10. IMURAN [Suspect]
     Active Substance: AZATHIOPRINE
     Indication: SCLERODERMA
     Dosage: 25 MG, QD
     Route: 048
     Dates: start: 20171103
  11. CYANOCOBALAMIN. [Concomitant]
     Active Substance: CYANOCOBALAMIN
     Dosage: 5000 MCG, QD
     Route: 048
  12. OPSUMIT [Suspect]
     Active Substance: MACITENTAN
     Indication: PULMONARY HYPERTENSION
     Dosage: 10 MG, QD
     Route: 048
     Dates: start: 20171031
  13. REMODULIN [Suspect]
     Active Substance: TREPROSTINIL
     Dosage: 20.5 NG/KG, PER MIN
     Route: 042

REACTIONS (26)
  - Atypical pneumonia [Recovered/Resolved]
  - Corona virus infection [Recovered/Resolved]
  - Feeling abnormal [Recovering/Resolving]
  - Platelet count decreased [Not Recovered/Not Resolved]
  - Bronchitis viral [Recovered/Resolved]
  - Pancytopenia [Recovered/Resolved]
  - Oropharyngeal pain [Unknown]
  - Dyspnoea [Not Recovered/Not Resolved]
  - Oestrogen receptor positive breast cancer [Not Recovered/Not Resolved]
  - Haematocrit decreased [Not Recovered/Not Resolved]
  - White blood cell count decreased [Recovering/Resolving]
  - Pulmonary hypertension [Recovered/Resolved]
  - Transfusion [Recovered/Resolved]
  - Epistaxis [Not Recovered/Not Resolved]
  - Catheter site pain [Unknown]
  - Fatigue [Not Recovered/Not Resolved]
  - Scleroderma [Unknown]
  - Breast cancer metastatic [Not Recovered/Not Resolved]
  - Oral candidiasis [Unknown]
  - Acute respiratory failure [Recovered/Resolved]
  - Anaemia [Not Recovered/Not Resolved]
  - Haemoglobin decreased [Not Recovered/Not Resolved]
  - Asthenia [Not Recovered/Not Resolved]
  - Haemoptysis [Recovered/Resolved]
  - Aspartate aminotransferase increased [Unknown]
  - Blood alkaline phosphatase increased [Unknown]

NARRATIVE: CASE EVENT DATE: 20171109
